FAERS Safety Report 21604064 (Version 2)
Quarter: 2022Q4

REPORT INFORMATION
  Report Type: Spontaneous
  Country: IT (occurrence: IT)
  Receive Date: 20221116
  Receipt Date: 20221117
  Transmission Date: 20230113
  Serious: Yes (Hospitalization, Other)
  Sender: FDA-Public Use
  Company Number: IT-MLMSERVICE-20221103-3901941-2

PATIENT
  Age: 65 Year
  Sex: Female

DRUGS (1)
  1. EPIRUBICIN HYDROCHLORIDE [Suspect]
     Active Substance: EPIRUBICIN HYDROCHLORIDE
     Indication: Breast cancer
     Dosage: 540 MG/M2 (TOTAL; CUMULATIVE DOSE)
     Dates: start: 2003

REACTIONS (4)
  - Cardiac failure acute [Recovering/Resolving]
  - Left ventricular dysfunction [Recovering/Resolving]
  - Dyspnoea exertional [Recovering/Resolving]
  - Pleural effusion [Unknown]

NARRATIVE: CASE EVENT DATE: 20210101
